FAERS Safety Report 10685162 (Version 1)
Quarter: 2014Q4

REPORT INFORMATION
  Report Type: Spontaneous
  Country: US (occurrence: None)
  Receive Date: 20141230
  Receipt Date: 20141230
  Transmission Date: 20150529
  Serious: No
  Sender: FDA-Public Use
  Company Number: None

PATIENT
  Age: 75 Year
  Sex: Male

DRUGS (1)
  1. STIVARGA [Suspect]
     Active Substance: REGORAFENIB
     Indication: COLON CANCER
     Dosage: 160MG  DAILY FOR 21 DAYS OUT OF   ORAL
     Route: 048
     Dates: start: 20141121, end: 20141210

REACTIONS (1)
  - Hospice care [None]

NARRATIVE: CASE EVENT DATE: 20141224
